FAERS Safety Report 7704813-X (Version None)
Quarter: 2011Q3

REPORT INFORMATION
  Report Type: 
  Country: None (occurrence: None)
  Receive Date: 20110823
  Receipt Date: 20110818
  Transmission Date: 20111222
  Serious: Yes (Hospitalization, Other)
  Sender: FDA-Public Use
  Company Number: US-PFIZER INC-2010006394

PATIENT
  Sex: Female

DRUGS (41)
  1. TARKA [Concomitant]
     Indication: HYPERTENSION
     Dosage: UNK
     Dates: start: 20050627, end: 20080701
  2. CIPROFLOXACIN [Concomitant]
     Indication: BACTERIAL INFECTION
     Dosage: UNK
     Dates: start: 20051117, end: 20080901
  3. CLONAZEPAM [Concomitant]
     Indication: ANXIETY
     Dosage: UNK
     Dates: start: 20051202, end: 20080401
  4. ACETAMINOPHEN [Concomitant]
     Indication: PAIN
     Dosage: UNK
     Dates: start: 20060605
  5. HYDROXYZINE [Concomitant]
     Indication: DEPRESSION
     Dosage: UNK
     Dates: start: 20060818
  6. OXCARBAZEPINE [Concomitant]
     Indication: AFFECTIVE DISORDER
     Dosage: UNK
     Dates: start: 20071106, end: 20080601
  7. CIPROFLOXACIN [Concomitant]
     Indication: URINARY TRACT INFECTION
  8. AMOXICILLIN + CLAVULANATE POTASSIUM [Concomitant]
     Indication: BACTERIAL INFECTION
     Dosage: UNK
     Dates: start: 20061201, end: 20090901
  9. AMITRIPTYLINE [Concomitant]
     Indication: DEPRESSION
     Dosage: UNK
     Dates: start: 20080430, end: 20080502
  10. AMBIEN [Concomitant]
     Indication: INSOMNIA
     Dosage: UNK
     Dates: start: 20051117, end: 20081201
  11. CEPHALEXIN [Concomitant]
     Indication: BACTERIAL INFECTION
     Dosage: UNK
     Dates: start: 20060605, end: 20081201
  12. METHOCARBAMOL [Concomitant]
     Indication: MUSCLE RELAXANT THERAPY
     Dosage: UNK
     Dates: start: 20061011, end: 20080101
  13. LEXAPRO [Concomitant]
     Indication: DEPRESSION
     Dosage: UNK
     Dates: start: 20070118, end: 20080401
  14. ACETAMINOPHEN W/ CODEINE [Concomitant]
     Indication: ANALGESIC THERAPY
     Dosage: UNK
     Dates: start: 20070817, end: 20091201
  15. TEMAZEPAM [Concomitant]
     Indication: INSOMNIA
     Dosage: UNK
     Dates: start: 20060322, end: 20080401
  16. ACETAMINOPHEN AND HYDROCODONE BITARTRATE [Concomitant]
     Indication: ANALGESIC THERAPY
     Dosage: UNK
     Dates: start: 20060614, end: 20090901
  17. MECLIZINE [Concomitant]
     Indication: DIZZINESS
     Dosage: UNK
     Dates: start: 20060621
  18. REQUIP [Concomitant]
     Indication: RESTLESS LEGS SYNDROME
     Dosage: UNK
     Dates: start: 20070212
  19. CALCITRIOL [Concomitant]
     Indication: HYPOPARATHYROIDISM
     Dosage: UNK
     Dates: start: 20051117
  20. ACETAMINOPHEN AND OXYCODONE HCL [Concomitant]
     Indication: ANALGESIC THERAPY
     Dosage: UNK
     Dates: start: 20041016, end: 20090901
  21. GLIPIZIDE [Concomitant]
     Indication: DIABETES MELLITUS
     Dosage: UNK
     Dates: start: 20050624, end: 20091001
  22. PREVACID [Concomitant]
     Indication: GASTROOESOPHAGEAL REFLUX DISEASE
     Dosage: UNK
     Dates: start: 20051117
  23. MAGNESIUM OXIDE [Concomitant]
     Indication: HIATUS HERNIA
     Dosage: UNK
     Dates: start: 20051118, end: 20090101
  24. CHERATUSSIN COUGH SYRUP [Concomitant]
     Indication: COUGH
     Dosage: UNK
     Dates: start: 20051130, end: 20090401
  25. CHERATUSSIN COUGH SYRUP [Concomitant]
     Indication: NASAL CONGESTION
  26. LISINOPRIL [Concomitant]
     Indication: HYPERTENSION
     Dosage: UNK
     Dates: start: 20060328, end: 20080601
  27. AMOXICILLIN + CLAVULANATE POTASSIUM [Concomitant]
     Indication: ABSCESS
  28. SITAGLIPTIN [Concomitant]
     Indication: DIABETES MELLITUS
     Dosage: UNK
     Dates: start: 20070914, end: 20081201
  29. BENZONATATE [Concomitant]
     Indication: THROAT IRRITATION
     Dosage: UNK
     Dates: start: 20060112, end: 20080101
  30. PROMETHAZINE [Concomitant]
     Indication: NAUSEA
     Dosage: UNK
     Dates: start: 20060216, end: 20080401
  31. PREDNISONE [Concomitant]
     Indication: ASTHMA
     Dosage: UNK
     Dates: start: 20060818, end: 20090601
  32. HYDROXYZINE [Concomitant]
     Indication: ANXIETY
  33. METOCLOPRAMIDE [Concomitant]
     Indication: DYSPEPSIA
     Dosage: UNK
     Dates: start: 20061121, end: 20080401
  34. TRAZODONE [Concomitant]
     Indication: DEPRESSION
     Dosage: UNK
     Dates: start: 20070420, end: 20091201
  35. AZITHROMYCIN [Concomitant]
     Indication: BACTERIAL INFECTION
     Dosage: UNK
     Dates: start: 20080108, end: 20081101
  36. CHANTIX [Suspect]
     Indication: SMOKING CESSATION THERAPY
     Dosage: STARTING MONTH PACK AND CONTINUING MONTH PACK
     Dates: start: 20071231, end: 20080506
  37. LEVOXYL [Concomitant]
     Indication: THYROID HORMONE REPLACEMENT THERAPY
     Dosage: UNK
     Dates: start: 20050706
  38. RANITIDINE [Concomitant]
     Indication: GASTROOESOPHAGEAL REFLUX DISEASE
     Dosage: UNK
     Dates: start: 20060324
  39. PROPOXYPHENE HCL AND ACETAMINOPHEN [Concomitant]
     Indication: ANALGESIC THERAPY
     Dosage: UNK
     Dates: start: 20060724, end: 20080628
  40. METHYLPREDNISOLONE [Concomitant]
     Indication: ASTHMA
     Dosage: UNK
     Dates: start: 20060818, end: 20090601
  41. SALSALATE [Concomitant]
     Indication: ANALGESIC THERAPY
     Dosage: UNK
     Dates: start: 20071016, end: 20080401

REACTIONS (7)
  - INTENTIONAL OVERDOSE [None]
  - LOSS OF CONSCIOUSNESS [None]
  - BIPOLAR DISORDER [None]
  - AMNESIA [None]
  - MAJOR DEPRESSION [None]
  - ANXIETY [None]
  - SUICIDE ATTEMPT [None]
